FAERS Safety Report 19489312 (Version 1)
Quarter: 2021Q3

REPORT INFORMATION
  Report Type: Spontaneous
  Country: DE (occurrence: DE)
  Receive Date: 20210703
  Receipt Date: 20210703
  Transmission Date: 20211014
  Serious: Yes (Hospitalization)
  Sender: FDA-Public Use
  Company Number: DE-TEVA-2021-DE-1928961

PATIENT
  Age: 65 Year
  Sex: Female

DRUGS (7)
  1. GEMCITABINE. [Suspect]
     Active Substance: GEMCITABINE
     Indication: METASTASES TO LUNG
     Dosage: A CUMULATIVE DOSE OF 2025 MG/M2 FOR 3 CYCLES
     Route: 065
     Dates: start: 2019, end: 201910
  2. DOCETAXEL. [Suspect]
     Active Substance: DOCETAXEL
     Indication: METASTASES TO LUNG
  3. TAMOXIFEN [Concomitant]
     Active Substance: TAMOXIFEN
     Indication: BREAST CANCER METASTATIC
     Route: 065
     Dates: start: 201809
  4. DOXORUBICIN [Suspect]
     Active Substance: DOXORUBICIN
     Indication: SOFT TISSUE SARCOMA
     Dosage: RECEIVED FIVE TREATMENT CYCLES
     Route: 065
     Dates: start: 201903
  5. BEVACIZUMAB. [Suspect]
     Active Substance: BEVACIZUMAB
     Indication: SOFT TISSUE SARCOMA
     Dosage: RECEIVED FIVE TREATMENT CYCLES
     Route: 065
     Dates: start: 201903
  6. GEMCITABINE. [Suspect]
     Active Substance: GEMCITABINE
     Indication: SOFT TISSUE SARCOMA
     Dosage: A CUMULATIVE DOSAGE OF 1800 MG/M2 FOR 2 CYCLES
     Route: 065
     Dates: start: 201907
  7. DOCETAXEL. [Suspect]
     Active Substance: DOCETAXEL
     Indication: SOFT TISSUE SARCOMA
     Route: 065
     Dates: start: 201907

REACTIONS (6)
  - Thrombotic microangiopathy [Recovering/Resolving]
  - Thrombocytopenia [Recovering/Resolving]
  - Renal failure [Recovering/Resolving]
  - Acute kidney injury [Recovering/Resolving]
  - Microangiopathic haemolytic anaemia [Recovering/Resolving]
  - Haematotoxicity [Unknown]

NARRATIVE: CASE EVENT DATE: 2019
